FAERS Safety Report 10756572 (Version 4)
Quarter: 2015Q3

REPORT INFORMATION
  Report Type: Report from Study
  Country: US (occurrence: US)
  Receive Date: 20150202
  Receipt Date: 20150819
  Transmission Date: 20151125
  Serious: No
  Sender: FDA-Public Use
  Company Number: US-GILEAD-2015-0134464

PATIENT
  Age: 65 Year
  Sex: Female

DRUGS (1)
  1. AMBRISENTAN [Suspect]
     Active Substance: AMBRISENTAN
     Indication: PULMONARY ARTERIAL HYPERTENSION
     Dosage: 5 MG, QD
     Route: 065

REACTIONS (8)
  - Dyspnoea [Unknown]
  - Weight [Unknown]
  - Eye swelling [Unknown]
  - Lip swelling [Unknown]
  - Joint swelling [Unknown]
  - Fatigue [Unknown]
  - Peripheral swelling [Unknown]
  - Sinusitis [Unknown]
